FAERS Safety Report 13717639 (Version 1)
Quarter: 2017Q3

REPORT INFORMATION
  Report Type: Spontaneous
  Country: US (occurrence: US)
  Receive Date: 20170703
  Receipt Date: 20170703
  Transmission Date: 20171127
  Serious: Yes (Other)
  Sender: FDA-Public Use
  Company Number: None

PATIENT
  Age: 39 Year
  Sex: Female
  Weight: 68.04 kg

DRUGS (1)
  1. BUPROPION 150MG [Suspect]
     Active Substance: BUPROPION HYDROCHLORIDE
     Indication: DRUG DEPENDENCE
     Dosage: FREQUENCY - Q24HRS
     Route: 048
     Dates: start: 20170413

REACTIONS (1)
  - Urticaria [None]

NARRATIVE: CASE EVENT DATE: 20170413
